FAERS Safety Report 9373036 (Version 1)
Quarter: 2013Q2

REPORT INFORMATION
  Report Type: Spontaneous
  Country: TR (occurrence: None)
  Receive Date: 20130624
  Receipt Date: 20130624
  Transmission Date: 20140414
  Serious: Yes (Hospitalization)
  Sender: FDA-Public Use
  Company Number: TR-ALKEM-000100

PATIENT
  Age: 20 Year
  Sex: Female

DRUGS (1)
  1. METFORMIN (METFORMIN) [Suspect]

REACTIONS (5)
  - Suicide attempt [None]
  - Haemodialysis [None]
  - Lactic acidosis [None]
  - Hypoglycaemia [None]
  - Toxicity to various agents [None]
